FAERS Safety Report 24213691 (Version 2)
Quarter: 2024Q3

REPORT INFORMATION
  Report Type: Spontaneous
  Country: US (occurrence: US)
  Receive Date: 20240815
  Receipt Date: 20240909
  Transmission Date: 20241016
  Serious: No
  Sender: PFIZER
  Company Number: US-PFIZER INC-202400236296

PATIENT
  Age: 40 Year
  Sex: Female

DRUGS (2)
  1. LORBRENA [Suspect]
     Active Substance: LORLATINIB
     Indication: Non-small cell lung cancer
     Dosage: 75 MG
  2. LORBRENA [Suspect]
     Active Substance: LORLATINIB
     Dosage: 50 MG
     Dates: start: 201902

REACTIONS (9)
  - Cognitive disorder [Recovering/Resolving]
  - Balance disorder [Recovering/Resolving]
  - Speech disorder [Recovering/Resolving]
  - Blood cholesterol abnormal [Recovering/Resolving]
  - Blood pressure abnormal [Recovering/Resolving]
  - Heart rate increased [Recovering/Resolving]
  - Food craving [Recovering/Resolving]
  - Tachycardia [Not Recovered/Not Resolved]
  - Brain fog [Unknown]

NARRATIVE: CASE EVENT DATE: 20190201
